FAERS Safety Report 6706129-7 (Version None)
Quarter: 2010Q2

REPORT INFORMATION
  Report Type: 
  Country: None (occurrence: None)
  Receive Date: 20100430
  Receipt Date: 20100430
  Transmission Date: 20101027
  Serious: Yes (Hospitalization)
  Sender: FDA-Public Use
  Company Number: None

PATIENT
  Sex: Male
  Weight: 99 kg

DRUGS (2)
  1. CYTARABINE [Suspect]
     Dosage: 37800 MG
     Dates: start: 20081112
  2. ABELCET [Concomitant]

REACTIONS (6)
  - BLOOD CREATININE INCREASED [None]
  - BLOOD CULTURE POSITIVE [None]
  - CHILLS [None]
  - FEBRILE NEUTROPENIA [None]
  - PNEUMONIA FUNGAL [None]
  - STAPHYLOCOCCAL INFECTION [None]
